FAERS Safety Report 15171420 (Version 2)
Quarter: 2018Q3

REPORT INFORMATION
  Report Type: Report from Study
  Country: CA (occurrence: CA)
  Receive Date: 20180720
  Receipt Date: 20180907
  Transmission Date: 20181010
  Serious: Yes (Hospitalization)
  Sender: FDA-Public Use
  Company Number: CA-VERTEX PHARMACEUTICALS-2018-004892

PATIENT
  Age: 25 Year
  Sex: Female

DRUGS (25)
  1. VITAMIN K [Concomitant]
     Active Substance: PHYTONADIONE
     Dosage: 5 MG, QAM AND Q. THURSDAY
     Route: 048
  2. LANTUS [Concomitant]
     Active Substance: INSULIN GLARGINE
     Dosage: UNK, BID
  3. VITAMIN K1 [Concomitant]
     Active Substance: PHYTONADIONE
     Dosage: 5 MG EVERY MONDAY/ THURSDAY
     Route: 048
  4. DOMPERIDONE MALEATE [Concomitant]
     Active Substance: DOMPERIDONE MALEATE
     Dosage: 1 DOSAGE FORM, QID BEFORE MEALS AND AT BEDTIME.
     Route: 048
  5. ORKAMBI [Suspect]
     Active Substance: IVACAFTOR\LUMACAFTOR
     Indication: CYSTIC FIBROSIS
     Dosage: 2 DOSAGE FORM, BID
     Route: 048
     Dates: start: 20180423
  6. PULMOZYME [Concomitant]
     Active Substance: DORNASE ALFA
     Dosage: 2.5 MG, BID
     Route: 055
  7. FLUTICASONE;VILANTEROL [Concomitant]
     Dosage: 200 MICROGRAM, QD
     Route: 055
  8. AZITHROMYCIN ANHYDROUS. [Concomitant]
     Active Substance: AZITHROMYCIN ANHYDROUS
     Dosage: 500 MG, MON, WED AND FRIDAY
     Route: 048
  9. VITAMIN D                          /00107901/ [Concomitant]
     Active Substance: ERGOCALCIFEROL
     Dosage: 10000 UT, QD
     Route: 048
  10. SODIUM CHLORIDE. [Concomitant]
     Active Substance: SODIUM CHLORIDE
     Dosage: 1 NEBULE AS NEEDED
     Route: 055
  11. LORAZEPAM. [Concomitant]
     Active Substance: LORAZEPAM
     Dosage: 1 MG, PRN
     Route: 060
  12. INSULIN GLARGINE [Concomitant]
     Active Substance: INSULIN GLARGINE
     Dosage: 14 UT, BEDTIME
     Route: 058
  13. ZOPICLONE [Concomitant]
     Active Substance: ZOPICLONE
     Dosage: 7.5 MG, QD
     Route: 048
  14. VITAMIN A                          /00056001/ [Concomitant]
     Active Substance: RETINOL
     Dosage: 10000 UT, QD
     Route: 048
  15. HEPARIN [Concomitant]
     Active Substance: HEPARIN SODIUM
     Dosage: 100 UNITS ON IVAD EVERY 30 DAYS
  16. PANTOLOC                           /01263201/ [Concomitant]
     Active Substance: PANTOPRAZOLE SODIUM
     Dosage: 40 MG, BID
     Route: 048
  17. VENTOLIN [Concomitant]
     Active Substance: ALBUTEROL SULFATE
     Dosage: 2.5 MG, Q4H, PRN
     Route: 055
  18. SALBUTAMOL [Concomitant]
     Active Substance: ALBUTEROL
     Dosage: 2.5 MG, QID PRN OR CAN BE 200 TO 125 MG 2 TABLETS ORALLY BID
     Route: 055
  19. CREON [Concomitant]
     Active Substance: PANCRELIPASE AMYLASE\PANCRELIPASE LIPASE\PANCRELIPASE PROTEASE
     Dosage: 6 TO 7 CAPSULES WITH MEALS AND 3 TO 7 WITH SNACKS
     Route: 048
  20. PANTOPRAZOLE [Concomitant]
     Active Substance: PANTOPRAZOLE
     Dosage: 40 MG, BID
     Route: 048
  21. CENTRUM FORTE [Concomitant]
     Dosage: 1 DOSAGE FORM, BID
     Route: 048
  22. HUMULIN N [Concomitant]
     Active Substance: INSULIN HUMAN
     Dosage: 12 UNITS Q,A.M, 8 UNITS AT BEDTIME
     Route: 058
  23. INSULIN ASPART [Concomitant]
     Active Substance: INSULIN ASPART
     Dosage: TID BEFORE MEALS
     Route: 058
  24. NOVORAPID [Concomitant]
     Active Substance: INSULIN ASPART
     Route: 058
  25. VITAMIN E                          /00110501/ [Concomitant]
     Active Substance: TOCOPHEROL
     Dosage: 400 UT, QD
     Route: 048

REACTIONS (1)
  - Infective pulmonary exacerbation of cystic fibrosis [Recovered/Resolved]

NARRATIVE: CASE EVENT DATE: 20180430
